FAERS Safety Report 23637493 (Version 2)
Quarter: 2024Q1

REPORT INFORMATION
  Report Type: Spontaneous
  Country: NL (occurrence: NL)
  Receive Date: 20240315
  Receipt Date: 20240321
  Transmission Date: 20240410
  Serious: Yes (Life-Threatening, Hospitalization, Other)
  Sender: FDA-Public Use
  Company Number: NL-SA-2024SA081482

PATIENT
  Age: 70 Year
  Sex: Male

DRUGS (8)
  1. HYDROXYCHLOROQUINE [Suspect]
     Active Substance: HYDROXYCHLOROQUINE
     Indication: Rheumatoid arthritis
     Dosage: 400 MG, QD
     Dates: start: 2012
  2. METHOTREXATE [Suspect]
     Active Substance: METHOTREXATE
     Indication: Rheumatoid arthritis
     Dosage: 10 MG, QW
     Dates: start: 2012
  3. PREDNISONE [Suspect]
     Active Substance: PREDNISONE
     Indication: Rheumatoid arthritis
     Dosage: 5 MG, QD
     Dates: start: 202101
  4. PREDNISONE [Suspect]
     Active Substance: PREDNISONE
     Indication: Polyarthritis
     Dosage: 60 MG, QD (INCREASED)
     Dates: start: 202101
  5. PREDNISONE [Suspect]
     Active Substance: PREDNISONE
     Dosage: 20 MG, QD (TAPERED)
     Dates: start: 202101
  6. PREDNISONE [Suspect]
     Active Substance: PREDNISONE
     Dosage: 10 MG
     Dates: start: 202101
  7. LEFLUNOMIDE [Suspect]
     Active Substance: LEFLUNOMIDE
     Indication: Condition aggravated
  8. LEFLUNOMIDE [Suspect]
     Active Substance: LEFLUNOMIDE
     Indication: Rheumatoid arthritis

REACTIONS (25)
  - Disseminated Bacillus Calmette-Guerin infection [Recovered/Resolved]
  - Arthralgia [Recovered/Resolved]
  - Dermatitis bullous [Recovered/Resolved]
  - Pyrexia [Recovered/Resolved]
  - Chills [Recovered/Resolved]
  - Pain of skin [Recovered/Resolved]
  - Hypokinesia [Recovered/Resolved]
  - Normocytic anaemia [Recovered/Resolved]
  - Lymphadenopathy mediastinal [Recovered/Resolved]
  - Device related infection [Recovered/Resolved]
  - Subcutaneous abscess [Recovered/Resolved]
  - Meningitis listeria [Recovered/Resolved]
  - Leukopenia [Recovered/Resolved]
  - Thrombocytopenia [Recovered/Resolved]
  - Urinary tract infection [Recovered/Resolved]
  - Cellulitis [Recovered/Resolved]
  - Skin ulcer [Recovered/Resolved]
  - Herpes simplex viraemia [Recovered/Resolved]
  - Oropharyngeal candidiasis [Recovered/Resolved]
  - Oral candidiasis [Recovered/Resolved]
  - Paradoxical skin reaction [Recovered/Resolved]
  - Swelling [Recovered/Resolved]
  - Inflammation [Recovered/Resolved]
  - Skin lesion [Recovered/Resolved]
  - Tuberculosis [Recovered/Resolved]
